FAERS Safety Report 25613953 (Version 1)
Quarter: 2025Q3

REPORT INFORMATION
  Report Type: Spontaneous
  Country: CN (occurrence: CN)
  Receive Date: 20250728
  Receipt Date: 20250728
  Transmission Date: 20251021
  Serious: Yes (Hospitalization, Other)
  Sender: DAIICHI
  Company Number: CN-DSJP-DS-2025-154539-CN

PATIENT
  Age: 63 Year
  Sex: Female
  Weight: 83 kg

DRUGS (2)
  1. TRASTUZUMAB DERUXTECAN [Suspect]
     Active Substance: TRASTUZUMAB DERUXTECAN
     Indication: Targeted cancer therapy
     Dosage: 300 MG, QD
     Route: 041
     Dates: start: 20250612, end: 20250612
  2. TRASTUZUMAB DERUXTECAN [Suspect]
     Active Substance: TRASTUZUMAB DERUXTECAN
     Indication: Hormone receptor positive HER2 negative breast cancer

REACTIONS (2)
  - Thrombocytopenia [Recovering/Resolving]
  - Myelosuppression [Unknown]

NARRATIVE: CASE EVENT DATE: 20250701
